FAERS Safety Report 5444382-0 (Version None)
Quarter: 2007Q3

REPORT INFORMATION
  Report Type: 
  Country: None (occurrence: None)
  Receive Date: 20070906
  Receipt Date: 20070831
  Transmission Date: 20080115
  Serious: Yes (Hospitalization, Other)
  Sender: FDA-Public Use
  Company Number: PHRM2007FR02112

PATIENT
  Age: 67 Year
  Sex: Male

DRUGS (4)
  1. NEORAL [Suspect]
     Indication: RENAL TRANSPLANT
     Dosage: 200 MG DAILY
     Route: 048
  2. NEORAL [Suspect]
     Dosage: 150 MG
     Route: 048
  3. NEORAL [Suspect]
     Dosage: 120 MG DAILY
     Route: 048
  4. RULID [Suspect]
     Indication: BRONCHOPNEUMOPATHY
     Route: 048

REACTIONS (4)
  - BRONCHOPNEUMOPATHY [None]
  - CONDITION AGGRAVATED [None]
  - DRUG LEVEL INCREASED [None]
  - RENAL FAILURE CHRONIC [None]
